FAERS Safety Report 9718661 (Version 2)
Quarter: 2013Q4

REPORT INFORMATION
  Report Type: Not Available
  Country: US (occurrence: US)
  Receive Date: 20131125
  Receipt Date: 20131125
  Transmission Date: 20140711
  Serious: Yes (Other)
  Sender: FDA-Public Use
  Company Number: US-H. LUNDBECK A/S-DKLU1085389

PATIENT
  Age: 49 Year
  Sex: Female

DRUGS (9)
  1. ONFI [Suspect]
     Indication: GRAND MAL CONVULSION
     Dates: start: 201202
  2. ONFI [Suspect]
     Indication: EPILEPSY
     Route: 048
  3. ONFI [Suspect]
     Route: 048
  4. ONFI [Suspect]
     Route: 048
  5. ONFI [Suspect]
     Route: 048
     Dates: start: 201301
  6. ONFI [Suspect]
     Route: 048
     Dates: start: 201301
  7. TOPIRAMATE [Concomitant]
     Indication: PRODUCT USED FOR UNKNOWN INDICATION
  8. TEGRETOL [Concomitant]
     Indication: PRODUCT USED FOR UNKNOWN INDICATION
  9. VIMPAT [Concomitant]
     Indication: PRODUCT USED FOR UNKNOWN INDICATION

REACTIONS (5)
  - Convulsion [Not Recovered/Not Resolved]
  - Alopecia [Not Recovered/Not Resolved]
  - Weight increased [Not Recovered/Not Resolved]
  - Abdominal distension [Not Recovered/Not Resolved]
  - Emotional disorder [Not Recovered/Not Resolved]
